FAERS Safety Report 8887128 (Version 3)
Quarter: 2012Q4

REPORT INFORMATION
  Report Type: Report from Study
  Country: DE (occurrence: DE)
  Receive Date: 20121105
  Receipt Date: 20121214
  Transmission Date: 20130627
  Serious: Yes (Life-Threatening)
  Sender: FDA-Public Use
  Company Number: DE-ROCHE-1149709

PATIENT
  Age: 75 Year
  Sex: Female
  Weight: 105 kg

DRUGS (2)
  1. CAPECITABINE [Suspect]
     Indication: COLON CANCER
     Route: 048
     Dates: start: 20110228, end: 20110719
  2. CAPECITABINE [Suspect]
     Indication: RECTAL CANCER

REACTIONS (2)
  - Anastomotic complication [Recovered/Resolved with Sequelae]
  - Sepsis [Recovered/Resolved]
